FAERS Safety Report 4912248-8 (Version None)
Quarter: 2006Q1

REPORT INFORMATION
  Report Type: 
  Country: None (occurrence: None)
  Receive Date: 20060113
  Receipt Date: 20051107
  Transmission Date: 20060701
  Serious: Yes (Other)
  Sender: FDA-Public Use
  Company Number: HQWYE452508NOV05

PATIENT
  Age: 74 Year
  Sex: Female
  Weight: 69.01 kg

DRUGS (7)
  1. PREMPRO [Suspect]
     Indication: MENOPAUSAL SYMPTOMS
     Dosage: ORAL
     Route: 048
     Dates: start: 20000101
  2. PREMPRO [Suspect]
     Indication: OSTEOPOROSIS
     Dosage: ORAL
     Route: 048
     Dates: start: 20000101
  3. PREMPRO [Suspect]
     Dosage: ORAL
     Route: 048
     Dates: start: 20041101
  4. ISORDIL [Concomitant]
  5. LASIX [Concomitant]
  6. CALCIUM (CALCIUM) [Concomitant]
  7. POTASSIUM (POTASSIUM) [Concomitant]

REACTIONS (2)
  - PULMONARY EMBOLISM [None]
  - VAGINAL HAEMORRHAGE [None]
